FAERS Safety Report 5571775-3 (Version None)
Quarter: 2007Q4

REPORT INFORMATION
  Report Type: 
  Country: None (occurrence: None)
  Receive Date: 20071221
  Receipt Date: 20071218
  Transmission Date: 20080405
  Serious: Yes (Death)
  Sender: FDA-Public Use
  Company Number: B0499367A

PATIENT
  Age: 59 Year
  Sex: Male

DRUGS (13)
  1. VALTREX [Suspect]
     Indication: VARICELLA
     Dosage: 1000MG THREE TIMES PER DAY
     Route: 048
     Dates: start: 20071124, end: 20071125
  2. LODOPIN [Concomitant]
     Route: 048
  3. IMPROMEN [Concomitant]
     Route: 048
  4. TEGRETOL [Concomitant]
     Route: 048
  5. VEGETAMIN A [Concomitant]
     Route: 048
  6. UNKNOWN DRUG [Concomitant]
     Route: 048
  7. ROHYPNOL [Concomitant]
     Route: 065
  8. RISPERDAL [Concomitant]
     Route: 048
  9. NITRAZEPAM [Concomitant]
     Route: 048
  10. LEVOTOMIN [Concomitant]
     Route: 065
  11. SENNOSIDE [Concomitant]
     Route: 048
  12. GASTER [Concomitant]
     Route: 065
  13. POLARAMINE [Concomitant]
     Route: 065
     Dates: start: 20071123

REACTIONS (2)
  - CARDIAC FAILURE ACUTE [None]
  - DEATH [None]
